FAERS Safety Report 6484765-3 (Version None)
Quarter: 2009Q4

REPORT INFORMATION
  Report Type: 
  Country: None (occurrence: None)
  Receive Date: 20091209
  Receipt Date: 20090817
  Transmission Date: 20100525
  Serious: No
  Sender: FDA-Public Use
  Company Number: US-AMGEN-KDL349954

PATIENT
  Sex: Female

DRUGS (8)
  1. ENBREL [Suspect]
     Indication: PSORIASIS
     Route: 058
     Dates: start: 20090515
  2. SYNTHROID [Concomitant]
  3. AMBIEN [Concomitant]
  4. BUSPIRONE HCL [Concomitant]
  5. PREMARIN [Concomitant]
  6. ATENOLOL [Concomitant]
  7. CYMBALTA [Concomitant]
  8. OLANZAPINE [Concomitant]

REACTIONS (4)
  - ABDOMINAL PAIN UPPER [None]
  - HEADACHE [None]
  - PSORIASIS [None]
  - PSORIATIC ARTHROPATHY [None]
